FAERS Safety Report 20238042 (Version 1)
Quarter: 2021Q4

REPORT INFORMATION
  Report Type: Spontaneous
  Country: US (occurrence: US)
  Receive Date: 20211228
  Receipt Date: 20211228
  Transmission Date: 20220303
  Serious: No
  Sender: FDA-Public Use
  Company Number: US-PERRIGO-21US028724

PATIENT
  Age: 47 Year
  Sex: Female
  Weight: 87.982 kg

DRUGS (2)
  1. TIOCONAZOLE [Suspect]
     Active Substance: TIOCONAZOLE
     Indication: Vulvovaginal mycotic infection
     Dosage: 300 MG, SINGLE
     Route: 067
     Dates: start: 20210919, end: 20210919
  2. SEASONIQUE [Concomitant]
     Active Substance: ETHINYL ESTRADIOL\LEVONORGESTREL
     Indication: Contraception
     Dosage: UNK
     Route: 065
     Dates: start: 2011

REACTIONS (6)
  - Vaginal mucosal blistering [Not Recovered/Not Resolved]
  - Vulvovaginal pain [Not Recovered/Not Resolved]
  - Hypersensitivity [Not Recovered/Not Resolved]
  - Vulvovaginal discomfort [Not Recovered/Not Resolved]
  - Vulvovaginal burning sensation [Not Recovered/Not Resolved]
  - Vulvovaginal erythema [Not Recovered/Not Resolved]

NARRATIVE: CASE EVENT DATE: 20210919
